FAERS Safety Report 12872542 (Version 2)
Quarter: 2016Q4

REPORT INFORMATION
  Report Type: Report from Study
  Country: AT (occurrence: AT)
  Receive Date: 20161021
  Receipt Date: 20161111
  Transmission Date: 20170207
  Serious: Yes (Hospitalization)
  Sender: FDA-Public Use
  Company Number: AT-PFIZER INC-2016479962

PATIENT
  Age: 43 Year
  Sex: Female
  Weight: 87 kg

DRUGS (3)
  1. PALBOCICLIB [Suspect]
     Active Substance: PALBOCICLIB
     Indication: BREAST CANCER
     Dosage: 125 MG, 1X/DAY (ONCE A DAY 21 DAYS FOLLOWED BY 7 DAYS OFF, 28-DAY CYCLE)
     Route: 048
     Dates: start: 20160916, end: 20161012
  2. ZOLADEX [Suspect]
     Active Substance: GOSERELIN ACETATE
     Indication: BREAST CANCER
     Dosage: 3.6 MG, DAILY/28 DAYS
     Route: 058
     Dates: start: 20160425
  3. AROMASIN [Suspect]
     Active Substance: EXEMESTANE
     Indication: BREAST CANCER
     Dosage: 25 MG, DAILY/28 DAYS
     Route: 048
     Dates: start: 20160425

REACTIONS (1)
  - Urticaria [Recovered/Resolved]

NARRATIVE: CASE EVENT DATE: 20161009
